FAERS Safety Report 14956310 (Version 1)
Quarter: 2018Q2

REPORT INFORMATION
  Report Type: Spontaneous
  Country: US (occurrence: US)
  Receive Date: 20180531
  Receipt Date: 20180531
  Transmission Date: 20180711
  Serious: Yes (Other)
  Sender: FDA-Public Use
  Company Number: US-PFIZER INC-2018214902

PATIENT
  Age: 52 Year
  Sex: Female
  Weight: 53.98 kg

DRUGS (3)
  1. GABAPENTIN. [Suspect]
     Active Substance: GABAPENTIN
     Indication: ANXIETY
     Dosage: 100 MG, 4 TO 6 TIMES THROUGHOUT THE DAY
  2. GABAPENTIN. [Suspect]
     Active Substance: GABAPENTIN
     Indication: POST-TRAUMATIC STRESS DISORDER
     Dosage: 300 MG, UNK
  3. GABAPENTIN. [Suspect]
     Active Substance: GABAPENTIN
     Dosage: 300 MG, 1X/DAY (100MG-3 CAPSULES TAKEN ONCE A DAY AT NIGHT BEFORE BED)
     Route: 048
     Dates: start: 201804, end: 201805

REACTIONS (8)
  - Depression [Recovering/Resolving]
  - Suicidal ideation [Unknown]
  - Nausea [Unknown]
  - Insomnia [Unknown]
  - Drug ineffective for unapproved indication [Unknown]
  - Intentional product misuse [Unknown]
  - Muscle twitching [Unknown]
  - Pain [Unknown]

NARRATIVE: CASE EVENT DATE: 201804
